FAERS Safety Report 7980359-9 (Version None)
Quarter: 2011Q4

REPORT INFORMATION
  Report Type: 
  Country: None (occurrence: None)
  Receive Date: 20111214
  Receipt Date: 20111207
  Transmission Date: 20120403
  Serious: Yes (Other)
  Sender: FDA-Public Use
  Company Number: AR-JNJFOC-20111205054

PATIENT
  Age: 48 Year
  Sex: Male
  Weight: 109.8 kg

DRUGS (1)
  1. GOLIMUMAB [Suspect]
     Indication: RHEUMATOID ARTHRITIS
     Route: 058
     Dates: start: 20100528, end: 20101228

REACTIONS (1)
  - BLADDER TRANSITIONAL CELL CARCINOMA [None]
